FAERS Safety Report 26128748 (Version 1)
Quarter: 2025Q4

REPORT INFORMATION
  Report Type: Spontaneous
  Country: CA (occurrence: CA)
  Receive Date: 20251208
  Receipt Date: 20251208
  Transmission Date: 20260118
  Serious: Yes (Hospitalization, Other)
  Sender: JOHNSON AND JOHNSON
  Company Number: CA-JNJFOC-20251209391

PATIENT
  Age: 79 Year
  Sex: Male

DRUGS (1)
  1. INFLIXIMAB [Suspect]
     Active Substance: INFLIXIMAB
     Indication: Product used for unknown indication
     Route: 041

REACTIONS (1)
  - Haematochezia [Unknown]
